FAERS Safety Report 21973517 (Version 1)
Quarter: 2023Q1

REPORT INFORMATION
  Report Type: Spontaneous
  Country: US (occurrence: US)
  Receive Date: 20230209
  Receipt Date: 20230209
  Transmission Date: 20230418
  Serious: Yes (Other)
  Sender: FDA-Public Use
  Company Number: US-PFIZER INC-202300056774

PATIENT

DRUGS (1)
  1. PAXLOVID [Suspect]
     Active Substance: NIRMATRELVIR\RITONAVIR
     Indication: COVID-19 treatment
     Dosage: UNK (300 MILLIGRAM 100 MILLIGRAM DOSE PACK )

REACTIONS (6)
  - Arrhythmia [Unknown]
  - Dry mouth [Unknown]
  - Dizziness [Unknown]
  - Palpitations [Unknown]
  - Tachyphrenia [Unknown]
  - Insomnia [Unknown]
